FAERS Safety Report 4387864-5 (Version None)
Quarter: 2004Q2

REPORT INFORMATION
  Report Type: 
  Country: None (occurrence: None)
  Receive Date: 20040630
  Receipt Date: 20040623
  Transmission Date: 20050107
  Serious: Yes (Death)
  Sender: FDA-Public Use
  Company Number: JP-BRISTOL-MYERS SQUIBB COMPANY-12623971

PATIENT
  Sex: Female

DRUGS (2)
  1. TAXOL [Suspect]
     Indication: BREAST CANCER RECURRENT
     Route: 041
  2. HERCEPTIN [Suspect]
     Indication: BREAST CANCER RECURRENT
     Route: 041

REACTIONS (1)
  - ACUTE RESPIRATORY FAILURE [None]
